FAERS Safety Report 7040637-7 (Version None)
Quarter: 2010Q4

REPORT INFORMATION
  Report Type: 
  Country: None (occurrence: None)
  Receive Date: 20101012
  Receipt Date: 20101005
  Transmission Date: 20110411
  Serious: Yes (Hospitalization)
  Sender: FDA-Public Use
  Company Number: CH-AMGEN-QUU438100

PATIENT
  Age: 36 Year
  Sex: Male
  Weight: 118 kg

DRUGS (1)
  1. ENBREL [Suspect]
     Indication: ANKYLOSING SPONDYLITIS
     Route: 058
     Dates: start: 20050207, end: 20100707

REACTIONS (1)
  - TRANSITIONAL CELL CARCINOMA [None]
